FAERS Safety Report 8762757 (Version 5)
Quarter: 2013Q1

REPORT INFORMATION
  Report Type: Spontaneous
  Country: US (occurrence: US)
  Receive Date: 20120828
  Receipt Date: 20130118
  Transmission Date: 20140127
  Serious: Yes (Death, Hospitalization, Other)
  Sender: FDA-Public Use
  Company Number: US-PFIZER INC-2012207375

PATIENT
  Age: 57 Year
  Sex: Female
  Weight: 46.71 kg

DRUGS (1)
  1. REVATIO [Suspect]
     Indication: RAYNAUD^S PHENOMENON
     Dosage: 20 MG, 3X/DAY
     Dates: start: 20110325

REACTIONS (7)
  - Raynaud^s phenomenon [Fatal]
  - Pneumonia aspiration [Recovered/Resolved]
  - Finger amputation [Unknown]
  - Systemic lupus erythematosus [Unknown]
  - Gastrooesophageal reflux disease [Unknown]
  - Scleroderma [Unknown]
  - Off label use [Unknown]
